FAERS Safety Report 9386630 (Version 1)
Quarter: 2013Q3

REPORT INFORMATION
  Report Type: Spontaneous
  Country: JP (occurrence: JP)
  Receive Date: 20130708
  Receipt Date: 20130708
  Transmission Date: 20140515
  Serious: Yes (Hospitalization)
  Sender: FDA-Public Use
  Company Number: PHHY2013JP071522

PATIENT
  Sex: Female

DRUGS (4)
  1. EXELON PATCH [Suspect]
     Indication: DEMENTIA
     Dosage: UNK UKN, UNK
     Route: 062
  2. EXELON PATCH [Suspect]
     Dosage: 13.5 MG, DAILY
     Route: 062
  3. EXELON PATCH [Suspect]
     Dosage: 4.5 MG, DAILY
     Route: 062
  4. PLETAAL [Concomitant]
     Route: 048

REACTIONS (4)
  - Cardiac arrest [Unknown]
  - Sick sinus syndrome [Unknown]
  - Arrhythmia [Unknown]
  - Dizziness [Unknown]
